FAERS Safety Report 11258102 (Version 1)
Quarter: 2015Q3

REPORT INFORMATION
  Report Type: Spontaneous
  Country: KR (occurrence: KR)
  Receive Date: 20150710
  Receipt Date: 20150710
  Transmission Date: 20151125
  Serious: Yes (Hospitalization)
  Sender: FDA-Public Use
  Company Number: KR-AMGEN-KORCT2015068453

PATIENT
  Age: 54 Year
  Sex: Female

DRUGS (50)
  1. DEXAMETHASONE. [Concomitant]
     Active Substance: DEXAMETHASONE
     Dosage: 1.5 MG, UNK
     Route: 048
     Dates: start: 20150508, end: 20150508
  2. DEXAMETHASONE. [Concomitant]
     Active Substance: DEXAMETHASONE
     Dosage: 1.5 MG, UNK
     Route: 048
     Dates: start: 20150529, end: 20150529
  3. PALONOSETRON [Concomitant]
     Active Substance: PALONOSETRON
     Dosage: 0.25 MG, UNK
     Route: 042
     Dates: start: 20150509, end: 20150509
  4. APREPITANT. [Concomitant]
     Active Substance: APREPITANT
     Dosage: 125 MG, UNK
     Route: 048
     Dates: start: 20150509, end: 20150509
  5. DIMENHYDRINATE. [Concomitant]
     Active Substance: DIMENHYDRINATE
     Dosage: 150 MG, UNK
     Route: 048
     Dates: start: 20150530, end: 20150531
  6. MEGESTROL ACETATE. [Concomitant]
     Active Substance: MEGESTROL ACETATE
     Dosage: 800 MG, UNK
     Route: 048
     Dates: start: 20150515, end: 20150516
  7. DOXORUBICIN [Concomitant]
     Active Substance: DOXORUBICIN
     Dosage: 72 MG, UNK
     Route: 042
     Dates: start: 20150530, end: 20150530
  8. RANITIDINE [Concomitant]
     Active Substance: RANITIDINE\RANITIDINE HYDROCHLORIDE
     Dosage: 150 MG, UNK
     Route: 048
     Dates: start: 20150529, end: 20150529
  9. FILGRASTIM [Concomitant]
     Active Substance: FILGRASTIM
     Dosage: 150 MUG, UNK
     Route: 058
     Dates: start: 20150515, end: 20150516
  10. FILGRASTIM [Concomitant]
     Active Substance: FILGRASTIM
     Dosage: 150 MUG, UNK
     Route: 058
     Dates: start: 20150605, end: 20150606
  11. LEGALON [Concomitant]
     Active Substance: MILK THISTLE
     Dosage: 420MG10MG
     Route: 048
     Dates: start: 20150517, end: 20150524
  12. G-LASTA [Suspect]
     Active Substance: PEGFILGRASTIM
     Indication: FEBRILE NEUTROPENIA
     Dosage: 6 MG, 1X/3WEEKS
     Route: 058
     Dates: start: 20150510
  13. DEXAMETHASONE. [Concomitant]
     Active Substance: DEXAMETHASONE
     Dosage: 10 MG, UNK
     Route: 042
     Dates: start: 20150529, end: 20150529
  14. APREPITANT. [Concomitant]
     Active Substance: APREPITANT
     Dosage: 80 MG, UNK
     Route: 048
     Dates: start: 20150531, end: 20150601
  15. TRESTAN                            /00056201/ [Concomitant]
     Dosage: 2C
     Route: 048
     Dates: start: 20150515, end: 20150516
  16. VITAMEDIN                          /00176001/ [Concomitant]
     Dosage: 50 MG, UNK
     Route: 048
     Dates: start: 20150605, end: 20150607
  17. PENNEL                             /01570505/ [Concomitant]
     Dosage: 3C
     Route: 048
     Dates: start: 20150517, end: 20150524
  18. G-LASTA [Suspect]
     Active Substance: PEGFILGRASTIM
     Dosage: 6 MG, 1X/3WEEKS
     Route: 058
     Dates: start: 20150531
  19. DOXORUBICIN [Concomitant]
     Active Substance: DOXORUBICIN
     Indication: BREAST CANCER
     Dosage: 72 MG, UNK
     Route: 042
     Dates: start: 20150509, end: 20150509
  20. CYCLOPHOSPHAMIDE. [Concomitant]
     Active Substance: CYCLOPHOSPHAMIDE
     Indication: BREAST CANCER
     Dosage: 725 MG, UNK
     Route: 042
     Dates: start: 20150509, end: 20150509
  21. CYCLOPHOSPHAMIDE. [Concomitant]
     Active Substance: CYCLOPHOSPHAMIDE
     Dosage: 725 MG, UNK
     Route: 042
     Dates: start: 20150530, end: 20150530
  22. DEXAMETHASONE. [Concomitant]
     Active Substance: DEXAMETHASONE
     Dosage: 3 MG, UNK
     Route: 048
     Dates: start: 20150510, end: 20150510
  23. DEXAMETHASONE. [Concomitant]
     Active Substance: DEXAMETHASONE
     Dosage: 3 MG, UNK
     Route: 048
     Dates: start: 20150531, end: 20150531
  24. PALONOSETRON [Concomitant]
     Active Substance: PALONOSETRON
     Dosage: 0.25 MG, UNK
     Route: 042
     Dates: start: 20150530, end: 20150530
  25. CEFOBACTAM [Concomitant]
     Dosage: 2 G, UNK
     Dates: start: 20150515, end: 20150516
  26. CEFOBACTAM [Concomitant]
     Dosage: 2 G, UNK
     Dates: start: 20150605, end: 20150607
  27. DOCETAXEL. [Concomitant]
     Active Substance: DOCETAXEL
     Dosage: 108 MG, UNK
     Route: 042
     Dates: start: 20150620, end: 20150620
  28. DEXAMETHASONE. [Concomitant]
     Active Substance: DEXAMETHASONE
     Dosage: 10 MG, UNK
     Route: 042
     Dates: start: 20150509, end: 20150509
  29. RANITIDINE [Concomitant]
     Active Substance: RANITIDINE\RANITIDINE HYDROCHLORIDE
     Dosage: 300 MG, UNK
     Route: 048
     Dates: start: 20150530, end: 20150531
  30. VITAMEDIN                          /00176001/ [Concomitant]
     Dosage: 50 MG, UNK
     Route: 048
     Dates: start: 20150515, end: 20150516
  31. TOBRAMYCIN. [Concomitant]
     Active Substance: TOBRAMYCIN
     Dosage: 200 MG, UNK
     Route: 042
     Dates: start: 20150605, end: 20150606
  32. METOCLOPRAMIDE HCL [Concomitant]
     Active Substance: METOCLOPRAMIDE HYDROCHLORIDE
     Dosage: 30 MG, UNK
     Route: 048
     Dates: start: 20150530, end: 20150531
  33. RANITIDINE [Concomitant]
     Active Substance: RANITIDINE\RANITIDINE HYDROCHLORIDE
     Dosage: 300 MG, UNK
     Route: 048
     Dates: start: 20150508, end: 20150510
  34. MEGESTROL ACETATE. [Concomitant]
     Active Substance: MEGESTROL ACETATE
     Dosage: 800 MG, UNK
     Route: 048
     Dates: start: 20150516, end: 20150607
  35. TRESTAN                            /00056201/ [Concomitant]
     Dosage: 2C
     Route: 048
     Dates: start: 20150605, end: 20150607
  36. TOBRAMYCIN. [Concomitant]
     Active Substance: TOBRAMYCIN
     Dosage: 200 MG, UNK
     Route: 042
     Dates: start: 20150515, end: 20150516
  37. ORNITHINE ASPARTATE [Concomitant]
     Active Substance: ORNITHINE ASPARTATE
     Dosage: 10 G, UNK
     Route: 042
     Dates: start: 20150516, end: 20150516
  38. DOCETAXEL. [Concomitant]
     Active Substance: DOCETAXEL
     Indication: BREAST CANCER
     Dosage: 108 MG, UNK
     Route: 042
     Dates: start: 20150509, end: 20150509
  39. DOXORUBICIN [Concomitant]
     Active Substance: DOXORUBICIN
     Dosage: 72 MG, UNK
     Route: 042
     Dates: start: 20150620, end: 20150620
  40. APREPITANT. [Concomitant]
     Active Substance: APREPITANT
     Dosage: 125 MG, UNK
     Route: 048
     Dates: start: 20150530, end: 20150530
  41. METOCLOPRAMIDE HCL [Concomitant]
     Active Substance: METOCLOPRAMIDE HYDROCHLORIDE
     Dosage: 30 MG, UNK
     Route: 048
     Dates: start: 20150508, end: 20150510
  42. DEXRAZOXANE. [Concomitant]
     Active Substance: DEXRAZOXANE
     Dosage: 720 MG, UNK
     Route: 042
     Dates: start: 20150509, end: 20150509
  43. DEXRAZOXANE. [Concomitant]
     Active Substance: DEXRAZOXANE
     Dosage: 720 MG, UNK
     Route: 042
     Dates: start: 20150530, end: 20150530
  44. G-LASTA [Suspect]
     Active Substance: PEGFILGRASTIM
     Dosage: 6 MG, 1X/3WEEKS
     Route: 058
     Dates: start: 20150621
  45. DOCETAXEL. [Concomitant]
     Active Substance: DOCETAXEL
     Dosage: 108 MG, UNK
     Route: 042
     Dates: start: 20150530, end: 20150530
  46. CYCLOPHOSPHAMIDE. [Concomitant]
     Active Substance: CYCLOPHOSPHAMIDE
     Dosage: 725 MG, UNK
     Route: 042
     Dates: start: 20150620, end: 20150620
  47. APREPITANT. [Concomitant]
     Active Substance: APREPITANT
     Dosage: 80 MG, UNK
     Route: 048
     Dates: start: 20150510, end: 20150511
  48. DIMENHYDRINATE. [Concomitant]
     Active Substance: DIMENHYDRINATE
     Dosage: 150 MG, UNK
     Route: 048
     Dates: start: 20150508, end: 20150510
  49. DIMENHYDRINATE. [Concomitant]
     Active Substance: DIMENHYDRINATE
     Dosage: 50 MG, UNK
     Route: 048
     Dates: start: 20150529, end: 20150529
  50. METOCLOPRAMIDE HCL [Concomitant]
     Active Substance: METOCLOPRAMIDE HYDROCHLORIDE
     Dosage: 10 MG, UNK
     Route: 048
     Dates: start: 20150529, end: 20150529

REACTIONS (1)
  - Neutropenia [Recovered/Resolved]

NARRATIVE: CASE EVENT DATE: 20150626
